FAERS Safety Report 6615289-8 (Version None)
Quarter: 2010Q1

REPORT INFORMATION
  Report Type: 
  Country: None (occurrence: None)
  Receive Date: 20100301
  Receipt Date: 20100218
  Transmission Date: 20100710
  Serious: No
  Sender: FDA-Public Use
  Company Number: 008357

PATIENT
  Age: 6 Year
  Sex: Male

DRUGS (3)
  1. BUSULFEX [Suspect]
     Indication: BONE MARROW TRANSPLANT
  2. CYCLOPHOSPHAMIDE [Concomitant]
  3. ANTI-THYMOCYTE GLOBULIN NOS [Concomitant]

REACTIONS (7)
  - PLATELET COUNT DECREASED [None]
  - PULMONARY OEDEMA [None]
  - REFRACTORINESS TO PLATELET TRANSFUSION [None]
  - RESPIRATORY DISORDER [None]
  - STAPHYLOCOCCAL SEPSIS [None]
  - URINE OUTPUT DECREASED [None]
  - VENOOCCLUSIVE LIVER DISEASE [None]
